FAERS Safety Report 12267012 (Version 1)
Quarter: 2016Q2

REPORT INFORMATION
  Report Type: Spontaneous
  Country: US (occurrence: None)
  Receive Date: 20160413
  Receipt Date: 20160413
  Transmission Date: 20160815
  Serious: Yes (Other)
  Sender: FDA-Public Use
  Company Number: None

PATIENT
  Age: 62 Year
  Sex: Male
  Weight: 118 kg

DRUGS (6)
  1. INTEGRILIN [Suspect]
     Active Substance: EPTIFIBATIDE
     Indication: ACUTE CORONARY SYNDROME
     Route: 041
     Dates: start: 20160409, end: 20160409
  2. EPTIFIBUTIDE [Concomitant]
  3. VERAPAMIL [Concomitant]
     Active Substance: VERAPAMIL HYDROCHLORIDE
  4. HEPARIN [Concomitant]
     Active Substance: HEPARIN SODIUM
  5. ODANSETRON [Concomitant]
     Active Substance: ONDANSETRON
  6. NITROGLYCERIN. [Concomitant]
     Active Substance: NITROGLYCERIN

REACTIONS (6)
  - White blood cell count increased [None]
  - Nausea [None]
  - Chills [None]
  - Platelet count decreased [None]
  - Tremor [None]
  - Back pain [None]

NARRATIVE: CASE EVENT DATE: 20160409
